FAERS Safety Report 15509714 (Version 1)
Quarter: 2018Q4

REPORT INFORMATION
  Report Type: Spontaneous
  Country: SK (occurrence: SK)
  Receive Date: 20181016
  Receipt Date: 20181016
  Transmission Date: 20190205
  Serious: Yes (Life-Threatening, Hospitalization, Other)
  Sender: FDA-Public Use
  Company Number: SK-SA-2018SA160664

PATIENT
  Age: 66 Year
  Sex: Male

DRUGS (5)
  1. CEFOTAXIME SODIUM [Suspect]
     Active Substance: CEFOTAXIME SODIUM
     Indication: PNEUMONIA CHLAMYDIAL
  2. CLARITHROMYCIN. [Suspect]
     Active Substance: CLARITHROMYCIN
     Indication: RESPIRATORY TRACT INFECTION
  3. CEFOTAXIME SODIUM [Suspect]
     Active Substance: CEFOTAXIME SODIUM
     Indication: RESPIRATORY TRACT INFECTION
     Route: 051
  4. METRONIDAZOLE. [Suspect]
     Active Substance: METRONIDAZOLE
     Indication: CLOSTRIDIUM DIFFICILE INFECTION
  5. CLARITHROMYCIN. [Suspect]
     Active Substance: CLARITHROMYCIN
     Indication: PNEUMONIA CHLAMYDIAL
     Route: 051

REACTIONS (7)
  - Abdominal distension [Recovering/Resolving]
  - Clostridium difficile colitis [Recovered/Resolved]
  - Ileus paralytic [Recovering/Resolving]
  - Megacolon [Recovering/Resolving]
  - Drug effect incomplete [Unknown]
  - Diarrhoea [Recovered/Resolved]
  - Pseudomembranous colitis [Recovering/Resolving]
